FAERS Safety Report 8468883-6 (Version None)
Quarter: 2012Q2

REPORT INFORMATION
  Report Type: 
  Country: None (occurrence: None)
  Receive Date: 20120626
  Receipt Date: 20120620
  Transmission Date: 20120825
  Serious: Yes (Hospitalization, Other)
  Sender: FDA-Public Use
  Company Number: BE-PFIZER INC-2012137721

PATIENT
  Age: 30 Year
  Sex: Male
  Weight: 68 kg

DRUGS (2)
  1. CARBOPLATIN [Suspect]
     Indication: TESTICULAR SEMINOMA (PURE)
     Dosage: 7X AUC
     Route: 042
     Dates: start: 20120417, end: 20120508
  2. ZOFRAN [Concomitant]
     Dosage: UNK
     Route: 048
     Dates: start: 20120508, end: 20120510

REACTIONS (1)
  - COLITIS ISCHAEMIC [None]
